FAERS Safety Report 21357596 (Version 1)
Quarter: 2022Q3

REPORT INFORMATION
  Report Type: Spontaneous
  Country: US (occurrence: US)
  Receive Date: 20220921
  Receipt Date: 20220921
  Transmission Date: 20221027
  Serious: Yes (Hospitalization)
  Sender: FDA-Public Use
  Company Number: US-JNJFOC-20220929186

PATIENT
  Age: 32 Year
  Sex: Male

DRUGS (4)
  1. HALDOL DECANOATE [Suspect]
     Active Substance: HALOPERIDOL DECANOATE
     Indication: Product used for unknown indication
     Route: 065
  2. HALOPERIDOL [Concomitant]
     Active Substance: HALOPERIDOL
     Indication: Sleep disorder therapy
     Route: 065
  3. BENZTROPINE [Concomitant]
     Active Substance: BENZTROPINE
     Indication: Sleep disorder therapy
     Route: 065
  4. QUETIAPINE [Concomitant]
     Active Substance: QUETIAPINE
     Indication: Sleep disorder therapy
     Route: 065

REACTIONS (1)
  - Overdose [Unknown]
